FAERS Safety Report 26027752 (Version 2)
Quarter: 2025Q4

REPORT INFORMATION
  Report Type: Spontaneous
  Country: CN (occurrence: CN)
  Receive Date: 20251111
  Receipt Date: 20251114
  Transmission Date: 20260118
  Serious: Yes (Hospitalization)
  Sender: ROCHE
  Company Number: CN-BoehringerIngelheim-2025-BI-105199

PATIENT
  Age: 85 Year
  Sex: Female
  Weight: 50.0 kg

DRUGS (2)
  1. ALTEPLASE [Suspect]
     Active Substance: ALTEPLASE
     Indication: Thrombolysis
     Dosage: 10% OF TOTAL DOSE?TOTAL DOSE: 30 MG
     Route: 042
     Dates: start: 20251022, end: 20251022
  2. ALTEPLASE [Suspect]
     Active Substance: ALTEPLASE
     Dosage: 90% OF TOTAL DOSE?TOTAL DOSE: 30 MG
     Route: 042
     Dates: start: 20251022, end: 20251022

REACTIONS (3)
  - Cerebral haemorrhage [Recovering/Resolving]
  - Pyrexia [Unknown]
  - Sputum retention [Unknown]

NARRATIVE: CASE EVENT DATE: 20251023
